FAERS Safety Report 8025997-2 (Version None)
Quarter: 2012Q1

REPORT INFORMATION
  Report Type: 
  Country: None (occurrence: None)
  Receive Date: 20120105
  Receipt Date: 20110930
  Transmission Date: 20120608
  Serious: No
  Sender: FDA-Public Use
  Company Number: US-ABBOTT-11P-163-0860632-00

PATIENT
  Sex: Female

DRUGS (2)
  1. SYNTHROID [Suspect]
     Indication: PRODUCT USED FOR UNKNOWN INDICATION
     Dates: start: 20110922
  2. SYNTHROID [Suspect]
     Dosage: ALTERNATING 100 MCG AND 112MCG
     Dates: end: 20110922

REACTIONS (2)
  - DRUG DISPENSING ERROR [None]
  - FEELING ABNORMAL [None]
